FAERS Safety Report 25036919 (Version 1)
Quarter: 2025Q1

REPORT INFORMATION
  Report Type: Spontaneous
  Country: US (occurrence: US)
  Receive Date: 20250304
  Receipt Date: 20250304
  Transmission Date: 20250408
  Serious: No
  Sender: ABBVIE
  Company Number: US-ABBVIE-6154019

PATIENT
  Sex: Female

DRUGS (1)
  1. SKYRIZI [Suspect]
     Active Substance: RISANKIZUMAB-RZAA
     Indication: Colitis ulcerative
     Route: 042

REACTIONS (5)
  - Blood pressure increased [Unknown]
  - Off label use [Not Recovered/Not Resolved]
  - Sensitive skin [Not Recovered/Not Resolved]
  - Flushing [Unknown]
  - Night sweats [Not Recovered/Not Resolved]
